FAERS Safety Report 11591018 (Version 2)
Quarter: 2015Q4

REPORT INFORMATION
  Report Type: Spontaneous
  Country: GB (occurrence: GB)
  Receive Date: 20151003
  Receipt Date: 20151211
  Transmission Date: 20160304
  Serious: Yes (Other)
  Sender: FDA-Public Use
  Company Number: GB-ACCORD-033957

PATIENT
  Age: 64 Year
  Sex: Female

DRUGS (4)
  1. AMITRIPTYLINE ACTAVIS [Suspect]
     Active Substance: AMITRIPTYLINE
     Indication: PRODUCT USED FOR UNKNOWN INDICATION
  2. AMITRIPTYLINE ACCORD [Suspect]
     Active Substance: AMITRIPTYLINE
     Indication: ANXIETY
     Route: 048
     Dates: end: 20151030
  3. MIRABEGRON [Concomitant]
     Active Substance: MIRABEGRON
     Indication: HYPERTONIC BLADDER
     Dosage: ONGOING
     Route: 048
     Dates: start: 201310
  4. TROSPIUM/TROSPIUM CHLORIDE [Concomitant]
     Indication: HYPERTONIC BLADDER
     Dosage: ONGOING
     Route: 048
     Dates: start: 201311

REACTIONS (3)
  - Restless legs syndrome [Recovered/Resolved]
  - Off label use [Unknown]
  - Product substitution issue [Unknown]
